FAERS Safety Report 6122077-8 (Version None)
Quarter: 2009Q1

REPORT INFORMATION
  Report Type: 
  Country: None (occurrence: None)
  Receive Date: 20090316
  Receipt Date: 20090316
  Transmission Date: 20090719
  Serious: Yes (Life-Threatening, Hospitalization, Disabling)
  Sender: FDA-Public Use
  Company Number: None

PATIENT
  Sex: Male

DRUGS (1)
  1. SUNITINIB [Suspect]
     Indication: METASTATIC NEOPLASM
     Dosage: 37.5 MG PO QD
     Dates: start: 20080601, end: 20080814

REACTIONS (1)
  - SUBARACHNOID HAEMORRHAGE [None]
